FAERS Safety Report 7078910-9 (Version None)
Quarter: 2010Q4

REPORT INFORMATION
  Report Type: 
  Country: None (occurrence: None)
  Receive Date: 20101102
  Receipt Date: 20101020
  Transmission Date: 20110411
  Serious: Yes (Other)
  Sender: FDA-Public Use
  Company Number: US-PFIZER INC-2010134173

PATIENT
  Sex: Male
  Weight: 99.773 kg

DRUGS (14)
  1. GEODON [Suspect]
     Indication: BIPOLAR DISORDER
     Dosage: 40 MG, 1X/DAY
     Route: 048
     Dates: start: 20100101, end: 20100101
  2. GEODON [Suspect]
     Dosage: 60 MG, 1X/DAY
     Route: 048
     Dates: start: 20100101, end: 20100101
  3. GEODON [Suspect]
     Dosage: 80 MG, 1X/DAY
     Route: 048
     Dates: start: 20100101, end: 20100101
  4. GEODON [Suspect]
     Dosage: 60 MG, 1X/DAY
     Route: 048
     Dates: start: 20100101
  5. METFORMIN [Concomitant]
     Indication: DIABETES MELLITUS
     Dosage: UNK
  6. VITAMIN B-12 [Concomitant]
     Dosage: UNK
  7. LISINOPRIL [Concomitant]
     Dosage: UNK
  8. HYDROCHLOROTHIAZIDE [Concomitant]
     Dosage: UNK
  9. DEPAKOTE [Concomitant]
     Dosage: UNK
  10. CLONAZEPAM [Concomitant]
     Dosage: UNK
  11. ZYPREXA [Concomitant]
     Dosage: UNK
  12. PROZAC [Concomitant]
     Dosage: UNK
  13. LOVASTATIN [Concomitant]
     Dosage: UNK
  14. VITAMIN D [Concomitant]
     Dosage: UNK

REACTIONS (8)
  - AGITATION [None]
  - ASTHENIA [None]
  - BLOOD TESTOSTERONE DECREASED [None]
  - DEPRESSION [None]
  - DRUG INEFFECTIVE [None]
  - ERECTILE DYSFUNCTION [None]
  - MOOD ALTERED [None]
  - TREMOR [None]
